FAERS Safety Report 24131704 (Version 3)
Quarter: 2024Q3

REPORT INFORMATION
  Report Type: Spontaneous
  Country: US (occurrence: US)
  Receive Date: 20240724
  Receipt Date: 20240730
  Transmission Date: 20241017
  Serious: No
  Sender: ROCHE
  Company Number: US-ROCHE-10000032760

PATIENT
  Age: 41 Year
  Sex: Female
  Weight: 58.06 kg

DRUGS (8)
  1. XOLAIR PFS [Suspect]
     Active Substance: OMALIZUMAB
     Indication: Urticaria
     Dosage: 2 OF 150MG PRE-FILLED SYRINGE ONCE A MONTH
     Route: 058
     Dates: start: 202205, end: 20240610
  2. XOLAIR PFS [Suspect]
     Active Substance: OMALIZUMAB
     Dosage: ONE 300MG AUTO INJECTOR AND ONE 150MG AUTO INJECTOR IN THE LEG ONCEA MONTH
     Route: 058
     Dates: start: 20240610
  3. HUMALOG [Concomitant]
     Active Substance: INSULIN LISPRO
     Indication: Type 1 diabetes mellitus
     Dosage: VIA INSULIN PUMP
     Dates: start: 2002
  4. LISINOPRIL [Concomitant]
     Active Substance: LISINOPRIL
     Indication: Hypertension
     Route: 048
  5. LEVOTHYROXINE [Concomitant]
     Active Substance: LEVOTHYROXINE\LEVOTHYROXINE SODIUM
     Indication: Hypothyroidism
     Route: 048
  6. ZOLOFT [Concomitant]
     Active Substance: SERTRALINE HYDROCHLORIDE
     Indication: Anxiety
     Route: 048
  7. ALLEGRA [Concomitant]
     Active Substance: FEXOFENADINE HYDROCHLORIDE
     Indication: Urticaria
     Dosage: 2 OF 180MG TABLETS IN THE MORNING AND 2 OF 180MG TABLETS AT NIGHT
     Route: 048
  8. ALBUTEROL [Concomitant]
     Active Substance: ALBUTEROL
     Indication: Asthma
     Dosage: 2 PUFFS AS NEEDED
     Route: 055

REACTIONS (5)
  - Product dose omission issue [Unknown]
  - Pain [Not Recovered/Not Resolved]
  - Arthropod sting [Unknown]
  - Product storage error [Unknown]
  - Product complaint [Unknown]

NARRATIVE: CASE EVENT DATE: 20240610
